FAERS Safety Report 4570789-X (Version None)
Quarter: 2005Q1

REPORT INFORMATION
  Report Type: 
  Country: None (occurrence: None)
  Receive Date: 20050202
  Receipt Date: 20050118
  Transmission Date: 20050727
  Serious: Yes (Other)
  Sender: FDA-Public Use
  Company Number: 2004-00876

PATIENT
  Age: 60 Year
  Sex: Male
  Weight: 78 kg

DRUGS (6)
  1. VELCADE [Suspect]
     Indication: MULTIPLE MYELOMA
     Dosage: 2.60 MG, 2/WEEK, INTRAVENOUS
     Route: 042
     Dates: start: 20040824, end: 20041119
  2. NAVOBAN (TROPISETRON HYDROCHLORIDE) [Concomitant]
  3. ZOMETA [Concomitant]
  4. BACTRIM [Concomitant]
  5. DIFLUCAN [Concomitant]
  6. TESTOSTERONE [Concomitant]

REACTIONS (8)
  - DIARRHOEA [None]
  - EXANTHEM [None]
  - FATIGUE [None]
  - LYMPHOCYTIC INFILTRATION [None]
  - NEUROPATHY PERIPHERAL [None]
  - PAIN IN EXTREMITY [None]
  - SKIN LESION [None]
  - WHITE BLOOD CELL COUNT DECREASED [None]
